FAERS Safety Report 10200309 (Version 1)
Quarter: 2014Q2

REPORT INFORMATION
  Report Type: Report from Study
  Country: BR (occurrence: BR)
  Receive Date: 20140527
  Receipt Date: 20140527
  Transmission Date: 20141212
  Serious: Yes (Hospitalization)
  Sender: FDA-Public Use
  Company Number: PHHY2014BR062888

PATIENT
  Age: 49 Year
  Sex: Male

DRUGS (15)
  1. MYCOPHENOLIC ACID [Suspect]
     Indication: RENAL TRANSPLANT
     Dosage: UNK UKN, UNK
     Dates: start: 200606
  2. MYCOPHENOLIC ACID [Suspect]
     Indication: IMMUNOSUPPRESSION
     Dosage: 1080 MG, QD
     Dates: start: 200608
  3. MYCOPHENOLIC ACID [Suspect]
     Dosage: UNK
     Dates: start: 200703
  4. MYCOPHENOLIC ACID [Suspect]
     Dosage: UNK
     Dates: start: 201405
  5. CICLOSPORIN [Suspect]
     Indication: IMMUNOSUPPRESSION
     Dosage: 800 MG,
  6. BASILIXIMAB [Suspect]
     Indication: IMMUNOSUPPRESSION
     Dosage: UNK UKN, UNK
  7. MYCOPHENOLATE MOFETIL [Suspect]
     Indication: IMMUNOSUPPRESSION
     Dosage: 2 G, UNK
  8. MYCOPHENOLATE MOFETIL [Suspect]
     Dosage: 2 G, DAILY
     Dates: start: 200606, end: 200606
  9. PREDNISONE [Suspect]
     Indication: IMMUNOSUPPRESSION
     Dosage: 80 MG,
  10. PREDNISONE [Suspect]
     Dosage: 10 MG, QD
     Dates: start: 200606
  11. PREDNISONE [Suspect]
     Dosage: 10 MG, QD
     Dates: start: 200608
  12. PREDNISONE [Suspect]
     Dosage: UNK UKN, UNK
     Dates: start: 201405
  13. SIROLIMUS [Suspect]
     Indication: IMMUNOSUPPRESSION
     Dosage: 2 MG, UNK (PER DAY)
     Dates: start: 200608
  14. SIROLIMUS [Suspect]
     Dosage: 5 MG, PER DAY
     Dates: start: 200610
  15. SIROLIMUS [Suspect]
     Dosage: 2 MG, QD
     Dates: start: 200703, end: 200703

REACTIONS (12)
  - Chronic allograft nephropathy [Unknown]
  - Blood creatinine increased [Unknown]
  - Creatinine renal clearance decreased [Unknown]
  - Proteinuria [Unknown]
  - Lung adenocarcinoma [Unknown]
  - Lung consolidation [Unknown]
  - Pulmonary mass [Unknown]
  - Bronchopneumonia [Unknown]
  - Cough [Unknown]
  - Pyrexia [Unknown]
  - Cytomegalovirus infection [Unknown]
  - Diarrhoea [Unknown]
